FAERS Safety Report 7426887-6 (Version None)
Quarter: 2011Q2

REPORT INFORMATION
  Report Type: 
  Country: None (occurrence: None)
  Receive Date: 20110413
  Receipt Date: 20110329
  Transmission Date: 20111010
  Serious: Yes (Other)
  Sender: FDA-Public Use
  Company Number: 2011BN000033

PATIENT
  Age: 58 Year
  Sex: Male
  Weight: 97.4 kg

DRUGS (1)
  1. MELPHALAN HYDROCHLORIDE [Suspect]
     Indication: MULTIPLE MYELOMA
     Dosage: 420 MG; 1X; IV
     Route: 042
     Dates: start: 20110319, end: 20110319

REACTIONS (2)
  - DYSKINESIA [None]
  - MUSCLE TWITCHING [None]
